FAERS Safety Report 4751098-2 (Version None)
Quarter: 2005Q3

REPORT INFORMATION
  Report Type: 
  Country: None (occurrence: None)
  Receive Date: 20050824
  Receipt Date: 20050218
  Transmission Date: 20060218
  Serious: No
  Sender: FDA-Public Use
  Company Number: US-GLAXOSMITHKLINE-A0546330A

PATIENT
  Age: 1 Year
  Sex: Female

DRUGS (3)
  1. LAMICTAL [Suspect]
     Indication: EPILEPSY
     Dosage: 4MG TWICE PER DAY
     Route: 048
     Dates: start: 20041101
  2. PHENOBARBITAL TAB [Concomitant]
  3. ZONEGRAN [Concomitant]

REACTIONS (1)
  - RESPIRATORY RATE INCREASED [None]
